FAERS Safety Report 7458842-4 (Version None)
Quarter: 2011Q2

REPORT INFORMATION
  Report Type: 
  Country: None (occurrence: None)
  Receive Date: 20110504
  Receipt Date: 20110426
  Transmission Date: 20111010
  Serious: Yes (Life-Threatening, Hospitalization)
  Sender: FDA-Public Use
  Company Number: GB-ROCHE-773707

PATIENT
  Age: 54 Year
  Sex: Female

DRUGS (2)
  1. RIBAVIRIN [Suspect]
     Indication: HEPATITIS C
     Dosage: DRUG WITHDRAWN
     Route: 048
     Dates: start: 20110102, end: 20110301
  2. PEGINTERFERON ALFA-2A [Suspect]
     Indication: HEPATITIS C
     Dosage: DRUG WITHDRAWN
     Route: 058
     Dates: start: 20110102, end: 20110301

REACTIONS (4)
  - PERSECUTORY DELUSION [None]
  - HALLUCINATION, AUDITORY [None]
  - THINKING ABNORMAL [None]
  - PSYCHOTIC DISORDER [None]
